FAERS Safety Report 9679031 (Version 1)
Quarter: 2013Q4

REPORT INFORMATION
  Report Type: Spontaneous
  Country: US (occurrence: US)
  Receive Date: 20131108
  Receipt Date: 20131108
  Transmission Date: 20140711
  Serious: Yes (Other)
  Sender: FDA-Public Use
  Company Number: US-PFIZER INC-2013319462

PATIENT
  Age: 52 Year
  Sex: Female
  Weight: 107.4 kg

DRUGS (5)
  1. LYRICA [Suspect]
     Indication: DIABETIC NEUROPATHY
     Dosage: 50 MG, 3X/DAY
     Route: 048
  2. LYRICA [Suspect]
     Dosage: 200 MG, 3X/DAY
     Route: 048
  3. CYMBALTA [Concomitant]
     Dosage: UNK
  4. HYDROCODONE [Concomitant]
     Dosage: UNK
  5. TOPROL XL [Concomitant]
     Dosage: UNK

REACTIONS (1)
  - Upper limb fracture [Not Recovered/Not Resolved]
